FAERS Safety Report 8152184-X (Version None)
Quarter: 2012Q1

REPORT INFORMATION
  Report Type: 
  Country: None (occurrence: None)
  Receive Date: 20120214
  Receipt Date: 20120201
  Transmission Date: 20120608
  Serious: Yes (Other)
  Sender: FDA-Public Use
  Company Number: JP-2012-10256

PATIENT
  Age: 85 Year
  Sex: Female
  Weight: 42 kg

DRUGS (18)
  1. SAMSCA [Suspect]
     Indication: CARDIAC FAILURE CHRONIC
     Dosage: 7.5 MG MILLIGRAM(S), QD, ORAL; 15 MG MILLIGRAM(S), QD, ORAL
     Route: 048
     Dates: start: 20111216, end: 20111217
  2. SAMSCA [Suspect]
     Indication: CARDIAC FAILURE CHRONIC
     Dosage: 7.5 MG MILLIGRAM(S), QD, ORAL; 15 MG MILLIGRAM(S), QD, ORAL
     Route: 048
     Dates: start: 20111218, end: 20120102
  3. SOLDACTONE (POTASSIUM CANRENOATE) [Concomitant]
  4. LASIX [Concomitant]
  5. NITRAZEPAM [Concomitant]
  6. MEROPENEM [Concomitant]
  7. DOPAMINE HCL [Concomitant]
  8. LASIX [Concomitant]
  9. HANP (CARPERITIDE) [Concomitant]
  10. DEPAS (ETIZOLAM) [Concomitant]
  11. WARFARIN SODIUM [Concomitant]
  12. ALDACTONE A (SPIRONLACTONE) [Concomitant]
  13. TRANDOLAPRIL [Concomitant]
  14. ISOSORBIDE DINITRATE [Concomitant]
  15. SIGMART (NICORANDIL) INJECTION [Concomitant]
  16. CELECOXIB [Concomitant]
  17. SIGMART (NICORANDIL) TABLET [Suspect]
  18. METOPROLOL TARTRATE [Concomitant]

REACTIONS (2)
  - PANCYTOPENIA [None]
  - RASH [None]
